FAERS Safety Report 6525450-9 (Version None)
Quarter: 2009Q4

REPORT INFORMATION
  Report Type: 
  Country: None (occurrence: None)
  Receive Date: 20091214
  Receipt Date: 20090209
  Transmission Date: 20100525
  Serious: Yes (Other)
  Sender: FDA-Public Use
  Company Number: 613745

PATIENT
  Age: 55 Year
  Sex: Male
  Weight: 96.6 kg

DRUGS (5)
  1. PEGASYS [Suspect]
     Indication: HEPATITIS C
     Dosage: 180 UG 1 PER WEEK SUBCUTANEOUS
     Route: 058
     Dates: start: 20080802
  2. RIBAVIRIN [Suspect]
     Indication: HEPATITIS C
     Dosage: 600 MG 2 PER DAY ORAL
     Route: 048
     Dates: start: 20080802
  3. HYDROCHLOROTHIAZIDE [Concomitant]
  4. BUPROPION (BUPROPRION) [Concomitant]
  5. ALBUTEROL [Concomitant]

REACTIONS (3)
  - DYSPNOEA [None]
  - IRRITABILITY [None]
  - SUPRAVENTRICULAR TACHYCARDIA [None]
